FAERS Safety Report 9167840 (Version 1)
Quarter: 2013Q1

REPORT INFORMATION
  Report Type: Spontaneous
  Country: IT (occurrence: IT)
  Receive Date: 20130318
  Receipt Date: 20130318
  Transmission Date: 20140127
  Serious: Yes (Disabling)
  Sender: FDA-Public Use
  Company Number: PHHY2013IT025179

PATIENT
  Sex: Male

DRUGS (6)
  1. ZOMETA [Suspect]
     Indication: PROSTATE CANCER METASTATIC
     Dosage: UNK UKN, UNK
     Route: 042
     Dates: start: 20100607, end: 20120927
  2. ANDROCUR [Concomitant]
     Dosage: UNK UKN, UNK
     Dates: start: 2011
  3. ENAPREN [Concomitant]
     Dosage: UNK UKN, UNK
     Dates: start: 2002
  4. TAXOTERE [Concomitant]
     Dosage: UNK UKN, UNK
     Dates: start: 20100114, end: 20100514
  5. LANTUS [Concomitant]
     Dosage: UNK UKN, UNK
     Dates: start: 2003
  6. NOVORAPID [Concomitant]
     Dosage: UNK UKN, UNK
     Dates: start: 2003

REACTIONS (1)
  - Osteonecrosis of jaw [Not Recovered/Not Resolved]
